FAERS Safety Report 6561697-3 (Version None)
Quarter: 2010Q1

REPORT INFORMATION
  Report Type: 
  Country: None (occurrence: None)
  Receive Date: 20100130
  Receipt Date: 20091029
  Transmission Date: 20100710
  Serious: No
  Sender: FDA-Public Use
  Company Number: US-ABBOTT-09P-163-0605748-00

PATIENT
  Sex: Female
  Weight: 101.7 kg

DRUGS (18)
  1. HUMIRA [Suspect]
     Indication: PSORIASIS
     Dates: start: 20080328
  2. MINOXIDE [Concomitant]
     Indication: DRUG USE FOR UNKNOWN INDICATION
  3. NITROQUICK PM [Concomitant]
     Indication: DRUG USE FOR UNKNOWN INDICATION
  4. NOVOLOG SLIDING SCALE INSULIN [Concomitant]
     Indication: DRUG USE FOR UNKNOWN INDICATION
  5. VENTOLIN [Concomitant]
     Indication: DRUG USE FOR UNKNOWN INDICATION
  6. VERAPAMIL [Concomitant]
     Indication: DRUG USE FOR UNKNOWN INDICATION
  7. AMITRIPTYLINE HCL [Concomitant]
     Indication: DRUG USE FOR UNKNOWN INDICATION
  8. ASPIRIN [Concomitant]
     Indication: DRUG USE FOR UNKNOWN INDICATION
  9. VALIUM [Concomitant]
     Indication: DRUG USE FOR UNKNOWN INDICATION
  10. HYDROCHLOROTHIAZIDE [Concomitant]
     Indication: DRUG USE FOR UNKNOWN INDICATION
  11. LISINOPRIL [Concomitant]
     Indication: DRUG USE FOR UNKNOWN INDICATION
  12. GABAPENTIN [Concomitant]
     Indication: DRUG USE FOR UNKNOWN INDICATION
  13. AMLODIPINE [Concomitant]
     Indication: DRUG USE FOR UNKNOWN INDICATION
  14. HYDRALAZINE [Concomitant]
     Indication: DRUG USE FOR UNKNOWN INDICATION
  15. FLUOCINONIDE [Concomitant]
     Indication: DRUG USE FOR UNKNOWN INDICATION
  16. CYCLOBENZAPRINE [Concomitant]
     Indication: DRUG USE FOR UNKNOWN INDICATION
  17. SIMVASTATIN [Concomitant]
     Indication: DRUG USE FOR UNKNOWN INDICATION
  18. HYDROCODONE [Concomitant]
     Indication: DRUG USE FOR UNKNOWN INDICATION

REACTIONS (3)
  - INJECTION SITE ERYTHEMA [None]
  - INJECTION SITE PAIN [None]
  - INJECTION SITE SWELLING [None]
